FAERS Safety Report 20735571 (Version 1)
Quarter: 2022Q2

REPORT INFORMATION
  Report Type: Spontaneous
  Country: US (occurrence: US)
  Receive Date: 20220421
  Receipt Date: 20220421
  Transmission Date: 20220721
  Serious: No
  Sender: FDA-Public Use
  Company Number: US-ELI_LILLY_AND_COMPANY-US202204009334

PATIENT
  Sex: Female

DRUGS (12)
  1. LYUMJEV KWIKPEN [Suspect]
     Active Substance: INSULIN LISPRO
     Indication: Type 1 diabetes mellitus
     Dosage: UNK UNK, OTHER (1 UNIT FOR EVERY 12 CARBS)
     Route: 058
     Dates: start: 202110
  2. LYUMJEV KWIKPEN [Suspect]
     Active Substance: INSULIN LISPRO
     Indication: Type 1 diabetes mellitus
     Dosage: UNK UNK, OTHER (1 UNIT FOR EVERY 12 CARBS)
     Route: 058
     Dates: start: 202110
  3. LYUMJEV KWIKPEN [Suspect]
     Active Substance: INSULIN LISPRO
     Dosage: UNK UNK, OTHER (1 UNIT FOR EVERY 12 CARBS)
     Route: 058
     Dates: start: 202110
  4. LYUMJEV KWIKPEN [Suspect]
     Active Substance: INSULIN LISPRO
     Dosage: UNK UNK, OTHER (1 UNIT FOR EVERY 12 CARBS)
     Route: 058
     Dates: start: 202110
  5. LYUMJEV KWIKPEN [Suspect]
     Active Substance: INSULIN LISPRO
     Dosage: 10 U, EACH EVENING
     Route: 058
     Dates: start: 202110
  6. LYUMJEV KWIKPEN [Suspect]
     Active Substance: INSULIN LISPRO
     Dosage: 10 U, EACH EVENING
     Route: 058
     Dates: start: 202110
  7. LYUMJEV KWIKPEN [Suspect]
     Active Substance: INSULIN LISPRO
     Dosage: UNK UNK, OTHER (1 UNIT FOR EVERY 12 CARBS)
     Route: 058
  8. LYUMJEV KWIKPEN [Suspect]
     Active Substance: INSULIN LISPRO
     Dosage: UNK UNK, OTHER (1 UNIT FOR EVERY 12 CARBS)
     Route: 058
  9. LYUMJEV KWIKPEN [Suspect]
     Active Substance: INSULIN LISPRO
     Dosage: UNK UNK, OTHER (1 UNIT FOR EVERY 12 CARBS)
     Route: 058
  10. LYUMJEV KWIKPEN [Suspect]
     Active Substance: INSULIN LISPRO
     Dosage: UNK UNK, OTHER (1 UNIT FOR EVERY 12 CARBS)
     Route: 058
  11. LYUMJEV KWIKPEN [Suspect]
     Active Substance: INSULIN LISPRO
     Dosage: 10 U, EACH EVENING
     Route: 058
  12. LYUMJEV KWIKPEN [Suspect]
     Active Substance: INSULIN LISPRO
     Dosage: 10 U, EACH EVENING
     Route: 058

REACTIONS (1)
  - Visual impairment [Unknown]
